FAERS Safety Report 12116150 (Version 1)
Quarter: 2016Q1

REPORT INFORMATION
  Report Type: Spontaneous
  Country: US (occurrence: US)
  Receive Date: 20160225
  Receipt Date: 20160225
  Transmission Date: 20160526
  Serious: No
  Sender: FDA-Public Use
  Company Number: US-ACTAVIS-2015-16280

PATIENT
  Age: 74 Year
  Sex: Female

DRUGS (4)
  1. GABAPENTIN (AELLC) [Suspect]
     Active Substance: GABAPENTIN
     Indication: NEUROPATHY PERIPHERAL
  2. GABAPENTIN (AELLC) [Suspect]
     Active Substance: GABAPENTIN
     Indication: NEUROPATHY PERIPHERAL
     Dosage: 100 MG, DAILY
     Route: 048
     Dates: start: 20150717, end: 20150720
  3. GABAPENTIN (AELLC) [Suspect]
     Active Substance: GABAPENTIN
     Indication: BACK PAIN
  4. LETROZOLE. [Concomitant]
     Active Substance: LETROZOLE
     Indication: HORMONE THERAPY
     Dosage: ONCE A DAY FOR 5 YEARS
     Route: 048
     Dates: start: 20141010

REACTIONS (14)
  - Tooth loss [Unknown]
  - Dental caries [Unknown]
  - Calcinosis [Unknown]
  - Skin discolouration [Unknown]
  - Constipation [Recovered/Resolved]
  - Lip oedema [Not Recovered/Not Resolved]
  - Gingival oedema [Not Recovered/Not Resolved]
  - Eye pain [Not Recovered/Not Resolved]
  - Drug ineffective [Not Recovered/Not Resolved]
  - Petechiae [Not Recovered/Not Resolved]
  - Gait disturbance [Unknown]
  - Haemorrhage subcutaneous [Unknown]
  - Joint swelling [Not Recovered/Not Resolved]
  - Dysuria [Unknown]

NARRATIVE: CASE EVENT DATE: 201507
